FAERS Safety Report 9265276 (Version 2)
Quarter: 2013Q2

REPORT INFORMATION
  Report Type: Report from Study
  Country: RS (occurrence: RS)
  Receive Date: 20130501
  Receipt Date: 20130516
  Transmission Date: 20140414
  Serious: Yes (Hospitalization)
  Sender: FDA-Public Use
  Company Number: RS-ROCHE-1217034

PATIENT
  Age: 60 Year
  Sex: Male
  Weight: 93 kg

DRUGS (9)
  1. METHOXY POLYETHYLENE GLYCOL-EPOETIN BETA [Suspect]
     Indication: NEPHROGENIC ANAEMIA
     Dosage: DATE OF MOST RECENT DOSE: 20/MAR/2013
     Route: 042
     Dates: start: 20090720
  2. NIFEDIPIN [Concomitant]
     Dosage: DAILY
     Route: 065
     Dates: start: 20100906
  3. ENALAPRIL [Concomitant]
     Route: 065
     Dates: start: 20100906
  4. LOSARTAN [Concomitant]
     Dosage: DAILY
     Route: 065
     Dates: start: 20111003
  5. ATENOLOL [Concomitant]
     Route: 065
     Dates: start: 20020715
  6. CALCIUM CARBONATE [Concomitant]
     Route: 065
     Dates: start: 20020122
  7. B COMPLEX VITAMIN [Concomitant]
     Route: 065
     Dates: start: 20020122, end: 20130408
  8. CALCITRIOL [Concomitant]
     Route: 065
     Dates: start: 20091115
  9. LOSARTAN [Concomitant]
     Route: 065
     Dates: start: 20130505, end: 20130508

REACTIONS (1)
  - Melaena [Recovered/Resolved]
